FAERS Safety Report 4742704-7 (Version None)
Quarter: 2005Q3

REPORT INFORMATION
  Report Type: 
  Country: None (occurrence: None)
  Receive Date: 20050811
  Receipt Date: 20030905
  Transmission Date: 20060218
  Serious: Yes (Death)
  Sender: FDA-Public Use
  Company Number: US-MERCK-0309USA00954

PATIENT

DRUGS (21)
  1. COZAAR [Suspect]
     Route: 048
  2. ACCOLATE [Suspect]
     Route: 065
  3. LEVOXYL [Suspect]
     Route: 065
  4. ZAROXOLYN [Suspect]
     Route: 065
  5. AMBIEN [Suspect]
     Route: 065
  6. ADVAIR DISKUS 100/50 [Suspect]
     Route: 065
  7. COLACE [Suspect]
     Route: 065
  8. COUMADIN [Suspect]
     Route: 065
  9. GLYBURIDE [Suspect]
     Route: 065
  10. ALDACTONE [Suspect]
     Route: 065
  11. AMIODARONE [Suspect]
     Route: 065
  12. NYSTATIN [Suspect]
     Route: 048
  13. TUSSIONEX [Suspect]
     Route: 065
  14. ASPIRIN [Suspect]
     Route: 065
  15. LASIX [Suspect]
     Route: 065
  16. LORAZEPAM [Suspect]
     Route: 065
  17. ZOLOFT [Suspect]
     Route: 065
  18. BENADRYL [Suspect]
     Route: 065
  19. VISTARIL [Suspect]
     Route: 065
  20. DECADRON [Suspect]
     Route: 048
  21. ZITHROMAX [Suspect]
     Route: 065

REACTIONS (4)
  - ADVERSE DRUG REACTION [None]
  - DEATH [None]
  - DRUG INTERACTION [None]
  - HYPERSENSITIVITY [None]
